FAERS Safety Report 10080671 (Version 4)
Quarter: 2014Q3

REPORT INFORMATION
  Report Type: Spontaneous
  Country: AU (occurrence: AU)
  Receive Date: 20140416
  Receipt Date: 20140812
  Transmission Date: 20150326
  Serious: Yes (Hospitalization, Other)
  Sender: FDA-Public Use
  Company Number: AU-AMGEN-AUSSP2014026621

PATIENT
  Age: 76 Year
  Sex: Male
  Weight: 99.2 kg

DRUGS (8)
  1. ARANESP [Suspect]
     Active Substance: DARBEPOETIN ALFA
     Indication: NEPHROGENIC ANAEMIA
     Dosage: 100 MUG, QWK
     Route: 058
     Dates: start: 2013
  2. SIMVASTATIN. [Concomitant]
     Active Substance: SIMVASTATIN
  3. CALTRATE                           /00944201/ [Concomitant]
  4. PERINDOPRIL [Concomitant]
     Active Substance: PERINDOPRIL
  5. HUMALOG [Concomitant]
     Active Substance: INSULIN LISPRO
  6. FRUSEMIDE                          /00032601/ [Concomitant]
     Active Substance: FUROSEMIDE
  7. CLOPIDOGREL [Concomitant]
     Active Substance: CLOPIDOGREL BISULFATE
  8. OSTEOVIT D [Concomitant]

REACTIONS (12)
  - Mitral valve incompetence [Unknown]
  - Left ventricular dysfunction [Unknown]
  - Renal failure acute [Unknown]
  - Aplasia pure red cell [Not Recovered/Not Resolved]
  - Myelodysplastic syndrome [Unknown]
  - Systolic dysfunction [Unknown]
  - Left ventricular failure [Unknown]
  - Cardiac failure [Unknown]
  - Pulmonary hypertension [Unknown]
  - Sleep apnoea syndrome [Unknown]
  - Ischaemic cardiomyopathy [Unknown]
  - Myocardial ischaemia [Unknown]

NARRATIVE: CASE EVENT DATE: 2013
